FAERS Safety Report 5913456-X (Version None)
Quarter: 2008Q4

REPORT INFORMATION
  Report Type: 
  Country: None (occurrence: None)
  Receive Date: 20081008
  Receipt Date: 20081008
  Transmission Date: 20090506
  Serious: Yes (Hospitalization)
  Sender: FDA-Public Use
  Company Number: None

PATIENT
  Sex: Female
  Weight: 80.5 kg

DRUGS (1)
  1. TEMOZOLOMIDE [Suspect]
     Dosage: 3780 MG

REACTIONS (3)
  - CSF BACTERIA IDENTIFIED [None]
  - CSF CULTURE POSITIVE [None]
  - EFFUSION [None]
